FAERS Safety Report 10863385 (Version 2)
Quarter: 2015Q2

REPORT INFORMATION
  Report Type: Spontaneous
  Country: US (occurrence: US)
  Receive Date: 20150224
  Receipt Date: 20150424
  Transmission Date: 20150821
  Serious: Yes (Other)
  Sender: FDA-Public Use
  Company Number: US-BAYER-2015-017607

PATIENT
  Age: 24 Year
  Sex: Male
  Weight: 91 kg

DRUGS (2)
  1. HELIXATE FS [Suspect]
     Active Substance: ANTIHEMOPHILIC FACTOR, HUMAN RECOMBINANT
     Indication: HAEMARTHROSIS
     Dosage: UNK
     Route: 042
     Dates: start: 20150117
  2. HELIXATE FS [Suspect]
     Active Substance: ANTIHEMOPHILIC FACTOR, HUMAN RECOMBINANT
     Indication: FACTOR VIII DEFICIENCY
     Dosage: 5450 IU, OW
     Route: 042

REACTIONS (2)
  - Haemarthrosis [Unknown]
  - Fall [Unknown]

NARRATIVE: CASE EVENT DATE: 20150122
